FAERS Safety Report 4895833-1 (Version None)
Quarter: 2005Q4

REPORT INFORMATION
  Report Type: 
  Country: None (occurrence: None)
  Receive Date: 20051220
  Receipt Date: 20050321
  Transmission Date: 20060501
  Serious: Yes (Other)
  Sender: FDA-Public Use
  Company Number: PHEH2005US03426

PATIENT
  Sex: Female

DRUGS (8)
  1. VIVELLE [Suspect]
     Dosage: TRANSDERMAL
     Route: 062
  2. PREMARIN [Suspect]
  3. MEDROXYPROGESTERONE ACETATE [Suspect]
  4. CYCRIN [Suspect]
  5. CURRETAB [Suspect]
  6. ESTRACE [Suspect]
  7. PROVERA [Suspect]
  8. PREMPRO [Suspect]

REACTIONS (3)
  - BREAST CANCER [None]
  - INJURY [None]
  - OVARIAN CANCER [None]
